FAERS Safety Report 18921775 (Version 1)
Quarter: 2021Q1

REPORT INFORMATION
  Report Type: Spontaneous
  Country: US (occurrence: US)
  Receive Date: 20210219
  Receipt Date: 20210219
  Transmission Date: 20210420
  Serious: Yes (Hospitalization)
  Sender: FDA-Public Use
  Company Number: None

PATIENT
  Age: 34 Year
  Sex: Female

DRUGS (2)
  1. PIQRAY [Suspect]
     Active Substance: ALPELISIB
     Indication: BREAST CANCER
     Route: 048
     Dates: start: 20200204, end: 20210217
  2. PIQRAY [Concomitant]
     Active Substance: ALPELISIB
     Dates: start: 20210204, end: 20210217

REACTIONS (1)
  - Diabetic ketoacidosis [None]

NARRATIVE: CASE EVENT DATE: 20210217
